FAERS Safety Report 9719845 (Version 1)
Quarter: 2013Q4

REPORT INFORMATION
  Report Type: Spontaneous
  Country: BR (occurrence: BR)
  Receive Date: 20131128
  Receipt Date: 20131128
  Transmission Date: 20140711
  Serious: Yes (Hospitalization)
  Sender: FDA-Public Use
  Company Number: BR-SA-2013SA119973

PATIENT
  Age: 82 Year
  Sex: Female
  Weight: 70 kg

DRUGS (11)
  1. LANTUS SOLOSTAR [Suspect]
     Indication: TYPE 2 DIABETES MELLITUS
     Dosage: DOSE:60 UNIT(S)
     Route: 058
     Dates: start: 2003
  2. LANTUS SOLOSTAR [Suspect]
     Indication: TYPE 2 DIABETES MELLITUS
     Dosage: DOSE:30 UNIT(S)
     Route: 058
  3. SOLOSTAR [Concomitant]
     Indication: DEVICE THERAPY
     Dates: start: 2003
  4. SOLOSTAR [Concomitant]
     Indication: DEVICE THERAPY
  5. REPARIL [Concomitant]
     Indication: PIGMENTATION DISORDER
  6. XARELTO [Concomitant]
     Indication: CEREBROVASCULAR ACCIDENT
     Dosage: STRENGTH: 20 MG
  7. DIOVANE [Concomitant]
     Indication: HYPERTENSION
     Dosage: STRENGTH: 80 MG
  8. OMEPRAZOLE [Concomitant]
     Indication: ABDOMINAL PAIN UPPER
     Dosage: STRENGTH: 40 MG
  9. SELOZOK [Concomitant]
     Indication: HEART RATE IRREGULAR
     Dosage: STRENGTH: 50 MG
  10. SIMVASTATIN [Concomitant]
     Indication: BLOOD CHOLESTEROL INCREASED
     Dosage: STRENGTH: 40 MG
     Dates: start: 2008
  11. GALVUS [Concomitant]
     Indication: TYPE 2 DIABETES MELLITUS
     Dosage: STRENGTH: 50 MG
     Dates: start: 2003

REACTIONS (5)
  - Cerebrovascular accident [Recovering/Resolving]
  - Aphasia [Recovering/Resolving]
  - Blood glucose increased [Recovering/Resolving]
  - Hemiplegia [Recovering/Resolving]
  - Drug administration error [Unknown]
